FAERS Safety Report 6431217-2 (Version None)
Quarter: 2009Q4

REPORT INFORMATION
  Report Type: 
  Country: None (occurrence: None)
  Receive Date: 20091106
  Receipt Date: 20091104
  Transmission Date: 20100525
  Serious: Yes (Other)
  Sender: FDA-Public Use
  Company Number: TW-ABBOTT-08P-153-0449220-00

PATIENT
  Sex: Female
  Weight: 53.5 kg

DRUGS (1)
  1. REDUCTIL 10MG [Suspect]
     Indication: OVERWEIGHT
     Route: 048
     Dates: start: 20080301, end: 20080423

REACTIONS (1)
  - STILLBIRTH [None]
